FAERS Safety Report 22357441 (Version 1)
Quarter: 2023Q2

REPORT INFORMATION
  Report Type: Spontaneous
  Country: US (occurrence: US)
  Receive Date: 20230524
  Receipt Date: 20230524
  Transmission Date: 20230721
  Serious: Yes (Other)
  Sender: FDA-Public Use
  Company Number: US-AUROBINDO-AUR-APL-2023-037543

PATIENT
  Sex: Male

DRUGS (1)
  1. AMLODIPINE [Suspect]
     Active Substance: AMLODIPINE BESYLATE
     Indication: Product used for unknown indication
     Dosage: UNK
     Route: 065

REACTIONS (14)
  - Ketoacidosis [Unknown]
  - Pulmonary oedema [Unknown]
  - Acute respiratory distress syndrome [Unknown]
  - Renal failure [Unknown]
  - Anuria [Unknown]
  - Suicide attempt [Unknown]
  - Hypotension [Unknown]
  - Metabolic acidosis [Unknown]
  - Impaired insulin secretion [Unknown]
  - Hypoperfusion [Unknown]
  - Respiratory acidosis [Unknown]
  - Ischaemia [Unknown]
  - Overdose [Unknown]
  - Intentional product misuse [Unknown]
